FAERS Safety Report 14033503 (Version 1)
Quarter: 2017Q4

REPORT INFORMATION
  Report Type: Spontaneous
  Country: US (occurrence: None)
  Receive Date: 20171003
  Receipt Date: 20171003
  Transmission Date: 20180321
  Serious: Yes (Hospitalization)
  Sender: FDA-Public Use
  Company Number: None

PATIENT
  Age: 78 Year
  Sex: Female

DRUGS (19)
  1. MELATONIN [Concomitant]
     Active Substance: MELATONIN
  2. LIPITOR [Concomitant]
     Active Substance: ATORVASTATIN CALCIUM
  3. VITAMIN D2 [Concomitant]
     Active Substance: ERGOCALCIFEROL
  4. NYSTATIN. [Concomitant]
     Active Substance: NYSTATIN
  5. BOSULIF [Suspect]
     Active Substance: BOSUTINIB MONOHYDRATE
     Indication: NEOPLASM MALIGNANT
     Route: 048
     Dates: start: 20141206
  6. DIGOXIN. [Concomitant]
     Active Substance: DIGOXIN
  7. TYLENOL [Concomitant]
     Active Substance: ACETAMINOPHEN
  8. METOPROLOL TARTRATE. [Concomitant]
     Active Substance: METOPROLOL TARTRATE
  9. LASIX [Concomitant]
     Active Substance: FUROSEMIDE
  10. POTASSIUM [Concomitant]
     Active Substance: POTASSIUM
  11. ASPIRIN. [Concomitant]
     Active Substance: ASPIRIN
  12. FLOVENT HFA [Concomitant]
     Active Substance: FLUTICASONE PROPIONATE
  13. ALLOPURINOL. [Concomitant]
     Active Substance: ALLOPURINOL
  14. ALBUTEROL. [Concomitant]
     Active Substance: ALBUTEROL
  15. LISINOPRIL. [Concomitant]
     Active Substance: LISINOPRIL
  16. PREDNISONE. [Concomitant]
     Active Substance: PREDNISONE
  17. AMLODIPINE [Concomitant]
     Active Substance: AMLODIPINE BESYLATE
  18. ACIDOPHILUS [Concomitant]
     Active Substance: LACTOBACILLUS ACIDOPHILUS
  19. CHERRY LIQ FLAVOR [Concomitant]

REACTIONS (3)
  - Pneumonia [None]
  - Asthma [None]
  - Therapy cessation [None]

NARRATIVE: CASE EVENT DATE: 20170925
